FAERS Safety Report 16844404 (Version 3)
Quarter: 2019Q4

REPORT INFORMATION
  Report Type: Spontaneous
  Country: US (occurrence: US)
  Receive Date: 20190924
  Receipt Date: 20191219
  Transmission Date: 20200122
  Serious: Yes (Other)
  Sender: FDA-Public Use
  Company Number: US-GLAXOSMITHKLINE-US2019169120

PATIENT
  Sex: Female

DRUGS (6)
  1. BENLYSTA [Suspect]
     Active Substance: BELIMUMAB
     Indication: SYSTEMIC LUPUS ERYTHEMATOSUS
     Dosage: UNK UNK, CYC, ONCE IN EVERY FOUR WEEK
     Route: 042
     Dates: start: 201703, end: 20190307
  2. PREDNISONE. [Suspect]
     Active Substance: PREDNISONE
     Indication: RASH
     Dosage: UNK
     Route: 065
     Dates: start: 2018
  3. BENLYSTA [Suspect]
     Active Substance: BELIMUMAB
     Dosage: UNK
     Route: 042
     Dates: start: 2018
  4. HEMP OIL [Concomitant]
     Active Substance: CANNABIS SATIVA SEED OIL
     Indication: PRODUCT USED FOR UNKNOWN INDICATION
     Dosage: UNK
     Route: 065
     Dates: start: 201901
  5. TRIAMCINOLONE [Suspect]
     Active Substance: TRIAMCINOLONE
     Indication: RASH
     Dosage: UNK
     Route: 065
     Dates: start: 2018
  6. METHOTREXATE. [Suspect]
     Active Substance: METHOTREXATE
     Indication: RASH
     Dosage: UNK
     Route: 065
     Dates: start: 2018

REACTIONS (19)
  - Scab [Recovered/Resolved]
  - Stomatitis [Unknown]
  - Haemorrhage [Recovered/Resolved]
  - Alopecia [Recovered/Resolved]
  - Fall [Unknown]
  - Gait disturbance [Recovering/Resolving]
  - Scar [Recovered/Resolved]
  - Asthenia [Recovered/Resolved]
  - Oral mucosal blistering [Recovering/Resolving]
  - Therapy cessation [Unknown]
  - Balance disorder [Recovered/Resolved]
  - Dyspnoea [Recovered/Resolved]
  - Rash [Recovered/Resolved]
  - Weight decreased [Recovered/Resolved]
  - Adverse drug reaction [Recovering/Resolving]
  - Hyponatraemia [Recovered/Resolved]
  - Head injury [Recovered/Resolved]
  - Near death experience [Unknown]
  - Face injury [Recovered/Resolved]

NARRATIVE: CASE EVENT DATE: 2017
